FAERS Safety Report 7236986-X (Version None)
Quarter: 2011Q1

REPORT INFORMATION
  Report Type: 
  Country: None (occurrence: None)
  Receive Date: 20110121
  Receipt Date: 20110114
  Transmission Date: 20110831
  Serious: Yes (Other)
  Sender: FDA-Public Use
  Company Number: 2005BI014098

PATIENT
  Age: 53 Year
  Sex: Female

DRUGS (3)
  1. AVONEX [Suspect]
     Route: 030
     Dates: start: 20050716, end: 20080401
  2. AVONEX [Suspect]
     Indication: MULTIPLE SCLEROSIS
     Route: 030
     Dates: start: 19980101, end: 20050104
  3. AVONEX [Suspect]
     Route: 030
     Dates: start: 20080603

REACTIONS (6)
  - MALIGNANT MELANOMA [None]
  - THROMBOCYTOPENIA [None]
  - LYMPHADENECTOMY [None]
  - JOINT SWELLING [None]
  - LENTIGO MALIGNA STAGE UNSPECIFIED [None]
  - THYROID CYST [None]
